FAERS Safety Report 17811828 (Version 4)
Quarter: 2020Q3

REPORT INFORMATION
  Report Type: Spontaneous
  Country: JP (occurrence: JP)
  Receive Date: 20200521
  Receipt Date: 20200810
  Transmission Date: 20201102
  Serious: Yes (Hospitalization, Disabling, Other)
  Sender: FDA-Public Use
  Company Number: JP-TEVA-2020-JP-1238647

PATIENT
  Age: 71 Year
  Sex: Female
  Weight: 48.6 kg

DRUGS (10)
  1. AZILECT [Suspect]
     Active Substance: RASAGILINE MESYLATE
     Indication: PARKINSON^S DISEASE
     Dosage: .5 MILLIGRAM DAILY;
     Route: 048
     Dates: start: 20180907
  2. LENDORMIN [Concomitant]
     Active Substance: BROTIZOLAM
  3. PURSENNID [Concomitant]
  4. MIRAPEX [Concomitant]
     Active Substance: PRAMIPEXOLE DIHYDROCHLORIDE
  5. EDIROL [Concomitant]
     Active Substance: ELDECALCITOL
     Dates: start: 20181114
  6. MENESIT [Concomitant]
     Active Substance: CARBIDOPA\LEVODOPA
  7. NAUZELIN [Concomitant]
     Active Substance: DOMPERIDONE
  8. CETILO [Concomitant]
     Active Substance: SENNA LEAF
  9. FUROSEMIDE. [Concomitant]
     Active Substance: FUROSEMIDE
  10. RIVOTRIL [Concomitant]
     Active Substance: CLONAZEPAM

REACTIONS (2)
  - Cerebral haemorrhage [Recovered/Resolved with Sequelae]
  - Pneumonia [Recovered/Resolved]

NARRATIVE: CASE EVENT DATE: 20200115
